FAERS Safety Report 8368051-2 (Version None)
Quarter: 2012Q2

REPORT INFORMATION
  Report Type: 
  Country: None (occurrence: None)
  Receive Date: 20120517
  Receipt Date: 20120504
  Transmission Date: 20120825
  Serious: No
  Sender: FDA-Public Use
  Company Number: US-ASTRAZENECA-2012SE29170

PATIENT
  Age: 54 Year
  Sex: Female
  Weight: 86.2 kg

DRUGS (6)
  1. SEROQUEL [Suspect]
     Indication: SLEEP DISORDER
     Route: 048
     Dates: start: 20110201
  2. CALCIUM [Concomitant]
  3. CLONAZEPAM [Concomitant]
  4. SEROQUEL [Suspect]
     Route: 048
     Dates: start: 20110201
  5. MAGNESIUM [Concomitant]
  6. CELEXA [Concomitant]

REACTIONS (3)
  - DRUG INEFFECTIVE FOR UNAPPROVED INDICATION [None]
  - INSOMNIA [None]
  - OFF LABEL USE [None]
